FAERS Safety Report 4267028-6 (Version None)
Quarter: 2004Q1

REPORT INFORMATION
  Report Type: 
  Country: None (occurrence: None)
  Receive Date: 20040107
  Receipt Date: 20031229
  Transmission Date: 20041129
  Serious: Yes (Hospitalization)
  Sender: FDA-Public Use
  Company Number: 2000026874US

PATIENT
  Age: 65 Year
  Sex: Male
  Weight: 73.2 kg

DRUGS (8)
  1. CAMPTOSAR [Suspect]
     Indication: OESOPHAGEAL CARCINOMA
     Dosage: 50 MG/M2, WEEKLY, IV
     Route: 042
     Dates: start: 20000404, end: 20000619
  2. CISPLATIN [Suspect]
     Indication: OESOPHAGEAL CARCINOMA
     Dosage: 30 MG/M2, WEEKLY, IV
     Route: 042
     Dates: start: 20000404, end: 20000619
  3. RADIATION THERAPY [Concomitant]
  4. ATENOLOL [Concomitant]
  5. ACIPHEX [Concomitant]
  6. VITAMINS NOS (VITAMINS NOS) [Concomitant]
  7. TENORMIN [Concomitant]
  8. MAGNESIUM OXIDE [Concomitant]

REACTIONS (1)
  - PULMONARY EMBOLISM [None]
